FAERS Safety Report 7329918-7 (Version None)
Quarter: 2011Q1

REPORT INFORMATION
  Report Type: 
  Country: None (occurrence: None)
  Receive Date: 20110303
  Receipt Date: 20110228
  Transmission Date: 20110831
  Serious: Yes (Hospitalization, Other)
  Sender: FDA-Public Use
  Company Number: US-PFIZER INC-2011026128

PATIENT
  Sex: Female

DRUGS (4)
  1. DILANTIN [Suspect]
     Indication: GRAND MAL CONVULSION
     Dosage: 100MG IN AM AND 200 MG PM
     Route: 042
     Dates: start: 20071014, end: 20070101
  2. BEXTRA [Suspect]
     Dosage: UNK
     Route: 048
  3. PHENYTOIN [Suspect]
     Indication: CONVULSION
     Dosage: UNK
     Route: 048
     Dates: start: 20071014, end: 20071105
  4. DILANTIN-125 [Suspect]
     Indication: GRAND MAL CONVULSION
     Dosage: 300 MG, 1X/DAY
     Route: 048
     Dates: start: 20071014, end: 20070101

REACTIONS (1)
  - STEVENS-JOHNSON SYNDROME [None]
